FAERS Safety Report 11320934 (Version 1)
Quarter: 2015Q3

REPORT INFORMATION
  Report Type: Spontaneous
  Country: FR (occurrence: FR)
  Receive Date: 20150729
  Receipt Date: 20150729
  Transmission Date: 20151125
  Serious: Yes (Hospitalization, Other)
  Sender: FDA-Public Use
  Company Number: FR-009507513-1507FRA012683

PATIENT
  Age: 49 Year
  Sex: Female

DRUGS (7)
  1. TERALITHE [Suspect]
     Active Substance: LITHIUM CARBONATE
     Indication: MAJOR DEPRESSION
     Dosage: UNK
     Route: 048
     Dates: start: 2014, end: 20141209
  2. LEVOTHYROX [Concomitant]
     Active Substance: LEVOTHYROXINE
     Dosage: UNK
     Route: 048
  3. MARSILID [Suspect]
     Active Substance: IPRONIAZID
     Indication: MAJOR DEPRESSION
     Dosage: UNK
     Route: 048
     Dates: start: 20140929, end: 20141209
  4. CARTEOL [Concomitant]
     Active Substance: CARTEOLOL
     Dosage: UNK
     Route: 048
  5. NORSET [Suspect]
     Active Substance: MIRTAZAPINE
     Indication: MAJOR DEPRESSION
     Dosage: UNK
     Route: 048
     Dates: start: 2014, end: 20140929
  6. XEROQUEL [Suspect]
     Active Substance: QUETIAPINE FUMARATE
     Indication: MAJOR DEPRESSION
     Dosage: UNK
     Route: 048
     Dates: start: 2014, end: 20141209
  7. LYSANXIA [Suspect]
     Active Substance: PRAZEPAM
     Dosage: UNK
     Route: 048
     Dates: end: 20141209

REACTIONS (4)
  - Hepatitis acute [Recovered/Resolved]
  - Hepatocellular injury [Recovered/Resolved]
  - Hepatic failure [Recovered/Resolved]
  - Jaundice [Recovered/Resolved]

NARRATIVE: CASE EVENT DATE: 20141205
